FAERS Safety Report 4734611-0 (Version None)
Quarter: 2005Q3

REPORT INFORMATION
  Report Type: 
  Country: None (occurrence: None)
  Receive Date: 20050729
  Receipt Date: 20050718
  Transmission Date: 20060218
  Serious: Yes (Hospitalization)
  Sender: FDA-Public Use
  Company Number: 216305

PATIENT
  Age: 79 Year
  Sex: Male

DRUGS (1)
  1. RITUXAN [Suspect]
     Indication: NON-HODGKIN'S LYMPHOMA
     Dates: start: 20050609

REACTIONS (6)
  - CHILLS [None]
  - GENERALISED OEDEMA [None]
  - NO REACTION ON PREVIOUS EXPOSURE TO DRUG [None]
  - PYREXIA [None]
  - RASH PRURITIC [None]
  - WEIGHT INCREASED [None]
